FAERS Safety Report 25983433 (Version 2)
Quarter: 2025Q4

REPORT INFORMATION
  Report Type: Report from Study
  Country: US (occurrence: US)
  Receive Date: 20251031
  Receipt Date: 20251118
  Transmission Date: 20260117
  Serious: Yes (Other)
  Sender: BAYER HEALTHCARE PHARMACEUTICALS INC.
  Company Number: US-BAYER-2025A132731

PATIENT
  Age: 79 Year
  Sex: Male

DRUGS (14)
  1. STIVARGA [Suspect]
     Active Substance: REGORAFENIB MONOHYDRATE
     Indication: Colon cancer
     Dosage: 160 MG, QD ON DAYS 1 THROUGH 21 EVERY 28 DAYS
     Route: 048
     Dates: start: 20251006, end: 2025
  2. STIVARGA [Suspect]
     Active Substance: REGORAFENIB MONOHYDRATE
     Indication: Rectal cancer
  3. TYLENOL EXTRA STRENGTH [Concomitant]
     Active Substance: ACETAMINOPHEN
  4. IMODIUM A-D [Concomitant]
     Active Substance: LOPERAMIDE HYDROCHLORIDE
  5. LATANOPROST [Concomitant]
     Active Substance: LATANOPROST
  6. PROTONIX [Concomitant]
     Active Substance: PANTOPRAZOLE SODIUM
  7. KAOPECTATE [Concomitant]
     Active Substance: BISMUTH SUBSALICYLATE
  8. TUMS [Concomitant]
     Active Substance: CALCIUM CARBONATE
  9. HYDRALAZINE HYDROCHLORIDE [Concomitant]
     Active Substance: HYDRALAZINE HYDROCHLORIDE
  10. VITAMIN B12 [Concomitant]
     Active Substance: CYANOCOBALAMIN
  11. NIFEDIPINE [Concomitant]
     Active Substance: NIFEDIPINE
  12. ONDANSETRON [Concomitant]
     Active Substance: ONDANSETRON
  13. VITAMINS [Concomitant]
     Active Substance: VITAMINS
  14. GABAPENTIN [Concomitant]
     Active Substance: GABAPENTIN
     Dosage: UNK

REACTIONS (14)
  - Ileostomy [Unknown]
  - Neuropathy peripheral [Unknown]
  - Vomiting [Unknown]
  - Arthralgia [Not Recovered/Not Resolved]
  - Pain in extremity [Unknown]
  - Abdominal discomfort [Unknown]
  - Diarrhoea [Unknown]
  - Feeling hot [Unknown]
  - Feeling abnormal [Unknown]
  - Tenderness [Not Recovered/Not Resolved]
  - Blister [Not Recovered/Not Resolved]
  - Dehydration [Not Recovered/Not Resolved]
  - Palmar-plantar erythrodysaesthesia syndrome [Unknown]
  - Skin wound [Unknown]

NARRATIVE: CASE EVENT DATE: 20250101
